FAERS Safety Report 7656923-3 (Version None)
Quarter: 2011Q3

REPORT INFORMATION
  Report Type: 
  Country: None (occurrence: None)
  Receive Date: 20110804
  Receipt Date: 20110801
  Transmission Date: 20111222
  Serious: Yes (Death)
  Sender: FDA-Public Use
  Company Number: US-CELGENEUS-163-21880-11070944

PATIENT
  Sex: Female

DRUGS (7)
  1. REVLIMID [Suspect]
     Indication: MULTIPLE MYELOMA
     Dosage: 15 MILLIGRAM
     Route: 048
     Dates: start: 20100501, end: 20100101
  2. FOSAMAX [Concomitant]
     Indication: OSTEOPOROSIS
     Dosage: 75 MILLIGRAM
     Route: 065
     Dates: end: 20110703
  3. ZOCOR [Concomitant]
     Dosage: 20 MILLIGRAM
     Route: 065
     Dates: end: 20110703
  4. REVLIMID [Suspect]
     Route: 048
     Dates: start: 20101101, end: 20110701
  5. PRINIVIL [Concomitant]
     Indication: HYPERTENSION
     Dosage: 5 MILLIGRAM
     Route: 065
     Dates: end: 20110703
  6. REVLIMID [Suspect]
     Dosage: 10 MILLIGRAM
     Route: 048
     Dates: start: 20100601, end: 20100101
  7. MAXZIDE [Concomitant]
     Indication: HYPERTENSION
     Dosage: 25 MILLIGRAM
     Route: 065
     Dates: end: 20110703

REACTIONS (1)
  - MULTIPLE MYELOMA [None]
